FAERS Safety Report 8231385 (Version 2)
Quarter: 2012Q4

REPORT INFORMATION
  Report Type: 
  Country: US (occurrence: US)
  Receive Date: 20111106
  Receipt Date: 20121107
  Transmission Date: 20130627
  Serious: Yes (Hospitalization)
  Sender: FDA-Public Use
  Company Number: US-AMGEN-USASP2011045206

PATIENT
  Age: 45 Year
  Sex: Male
  Weight: 76.19 kg

DRUGS (2)
  1. ENBREL [Suspect]
     Indication: PSORIATIC ARTHROPATHY
     Dosage: 50 mg, qwk
     Route: 058
     Dates: start: 2004
  2. ENBREL [Suspect]
     Dosage: 25 mg, 2 times/wk
     Dates: start: 20060801

REACTIONS (2)
  - Cellulitis [Recovered/Resolved]
  - Rhinitis allergic [Recovering/Resolving]
